FAERS Safety Report 10284843 (Version 1)
Quarter: 2014Q3

REPORT INFORMATION
  Report Type: Spontaneous
  Country: IT (occurrence: IT)
  Receive Date: 20140708
  Receipt Date: 20140708
  Transmission Date: 20150326
  Serious: Yes (Other)
  Sender: FDA-Public Use
  Company Number: IT-CELGENEUS-083-21880-14064659

PATIENT
  Age: 42 Year
  Sex: Female

DRUGS (4)
  1. EPOETIN [Concomitant]
     Active Substance: ERYTHROPOIETIN
     Indication: PRODUCT USED FOR UNKNOWN INDICATION
     Dosage: 150 MICROGRAM
     Route: 058
     Dates: start: 200205, end: 200908
  2. REVLIMID [Suspect]
     Active Substance: LENALIDOMIDE
     Dosage: 5 MILLIGRAM
     Route: 048
  3. REVLIMID [Suspect]
     Active Substance: LENALIDOMIDE
     Indication: MYELODYSPLASTIC SYNDROME
     Dosage: 10 MILLIGRAM
     Route: 048
     Dates: start: 200909
  4. EPOETIN [Concomitant]
     Active Substance: ERYTHROPOIETIN
     Route: 065
     Dates: start: 2005, end: 2008

REACTIONS (3)
  - Neutropenia [Unknown]
  - Platelet count abnormal [Unknown]
  - Myelodysplastic syndrome [Unknown]
